FAERS Safety Report 6876762-0 (Version None)
Quarter: 2010Q3

REPORT INFORMATION
  Report Type: 
  Country: None (occurrence: None)
  Receive Date: 20100727
  Receipt Date: 20100714
  Transmission Date: 20110219
  Serious: Yes (Hospitalization)
  Sender: FDA-Public Use
  Company Number: AU-AMGEN-KDC424467

PATIENT
  Sex: Male
  Weight: 124 kg

DRUGS (5)
  1. VECTIBIX [Suspect]
     Indication: COLORECTAL CANCER
     Dates: start: 20100707
  2. EVEROLIMUS [Concomitant]
     Route: 048
     Dates: start: 20100707
  3. PEPCIDIN [Concomitant]
     Route: 048
     Dates: start: 20000101
  4. ATACAND [Concomitant]
     Route: 048
     Dates: start: 20000101
  5. IRINOTECAN HCL [Concomitant]
     Dates: start: 20100707

REACTIONS (1)
  - RECTAL HAEMORRHAGE [None]
